FAERS Safety Report 8436316 (Version 2)
Quarter: 2012Q4

REPORT INFORMATION
  Report Type: 
  Country: FR (occurrence: FR)
  Receive Date: 20120301
  Receipt Date: 20120901
  Transmission Date: 20130627
  Serious: Yes (Other)
  Sender: FDA-Public Use
  Company Number: FR-PFIZER INC-2012050896

PATIENT
  Age: 86 Year
  Sex: Female

DRUGS (2)
  1. LYRICA [Suspect]
     Indication: NEUROPATHY PERIPHERAL
     Dosage: 50 mg, UNK
     Dates: start: 20120223
  2. LYRICA [Suspect]
     Dosage: 25mg, UNK
     Dates: start: 20120224

REACTIONS (4)
  - Visual acuity reduced [Unknown]
  - Eyelid oedema [Unknown]
  - Vertigo [Unknown]
  - Dizziness [Unknown]
